FAERS Safety Report 17293306 (Version 3)
Quarter: 2020Q1

REPORT INFORMATION
  Report Type: Spontaneous
  Country: ES (occurrence: ES)
  Receive Date: 20200121
  Receipt Date: 20200220
  Transmission Date: 20200409
  Serious: Yes (Hospitalization)
  Sender: FDA-Public Use
  Company Number: ES-MYLANLABS-2020M1005446

PATIENT
  Age: 38 Year
  Sex: Female
  Weight: 52.1 kg

DRUGS (25)
  1. CRESEMBA [Suspect]
     Active Substance: ISAVUCONAZONIUM SULFATE
     Dosage: 200 MG, 3X/DAY (EACH 8H)
     Route: 065
     Dates: start: 20190921, end: 20190922
  2. VFEND [Suspect]
     Active Substance: VORICONAZOLE
     Dosage: 500 MILLIGRAM, QD (500 MG/12 HOURS)
     Route: 042
     Dates: start: 2019, end: 20190920
  3. VFEND [Suspect]
     Active Substance: VORICONAZOLE
     Dosage: UNK
     Route: 042
     Dates: end: 20190921
  4. FOLIC ACID. [Concomitant]
     Active Substance: FOLIC ACID
     Dosage: 15 MILLIGRAM, QD (DAILY)
  5. MORPHINE [Concomitant]
     Active Substance: MORPHINE
     Dosage: 1 DOSAGE FORM, PRN (AS NEEDED)
  6. TINZAPARIN [Concomitant]
     Active Substance: TINZAPARIN
     Dosage: 4500 INTERNATIONAL UNIT, QD (DAILY)
     Dates: end: 20190923
  7. ENALAPRIL [Concomitant]
     Active Substance: ENALAPRIL
     Dosage: 10 MILLIGRAM, QD (DAILY)
  8. GABAPENTIN. [Concomitant]
     Active Substance: GABAPENTIN
     Dosage: 90 MILLIGRAM, QD (30 MG,3X/DAY (EACH 8H))
  9. ANAKINRA [Concomitant]
     Active Substance: ANAKINRA
     Dosage: 100 MILLIGRAM, QD (DAILY)
  10. ACICLOVIR [Suspect]
     Active Substance: ACYCLOVIR
     Indication: PRODUCT USED FOR UNKNOWN INDICATION
     Dosage: 800 MG, UNK
     Route: 048
     Dates: end: 20190927
  11. METHYLPREDNISOLONE SODIUM SUCCINATE. [Suspect]
     Active Substance: METHYLPREDNISOLONE SODIUM SUCCINATE
     Indication: PRODUCT USED FOR UNKNOWN INDICATION
     Dosage: UNK
     Route: 042
     Dates: end: 201909
  12. CRESEMBA [Suspect]
     Active Substance: ISAVUCONAZONIUM SULFATE
     Indication: ASPERGILLUS INFECTION
     Dosage: 200 MG, DAILY (EACH 24H)
     Route: 042
     Dates: start: 20190921, end: 20190922
  13. COTRIMOXAZOL [Suspect]
     Active Substance: SULFAMETHOXAZOLE\TRIMETHOPRIM
     Indication: PRODUCT USED FOR UNKNOWN INDICATION
     Dosage: UNK
     Dates: end: 201909
  14. MEROPENEM. [Concomitant]
     Active Substance: MEROPENEM
     Dosage: 3 GRAM, QD (1 G, 3X/DAY (EACH 8H))
     Dates: start: 20191014
  15. GABAPENTIN. [Concomitant]
     Active Substance: GABAPENTIN
     Dosage: 30 MG, 3X/DAY (EACH 8H)
  16. TAPENTADOL [Concomitant]
     Active Substance: TAPENTADOL
     Dosage: 150 MG, 2X/DAY (EACH 12H)
  17. CRESEMBA [Suspect]
     Active Substance: ISAVUCONAZONIUM SULFATE
     Dosage: 200 MG, DAILY (EACH 24H)
     Route: 042
     Dates: start: 20190922, end: 20191003
  18. MEROPENEM. [Concomitant]
     Active Substance: MEROPENEM
     Dosage: 1 G, 3X/DAY (EACH 8H)
     Dates: start: 20191014
  19. OXYCODONE [Concomitant]
     Active Substance: OXYCODONE
     Indication: PRODUCT USED FOR UNKNOWN INDICATION
     Dosage: 12 MG, EACH 4H AND IF NEEDED
     Route: 065
  20. BISACODYL. [Concomitant]
     Active Substance: BISACODYL
     Dosage: 5 MILLIGRAM, QD (DAILY)
     Dates: end: 20191001
  21. VFEND [Suspect]
     Active Substance: VORICONAZOLE
     Indication: ASPERGILLUS INFECTION
     Dosage: 200 MILLIGRAM,QD(200 MG/12 HOURS)
     Route: 042
     Dates: start: 20190702, end: 2019
  22. VFEND [Suspect]
     Active Substance: VORICONAZOLE
     Dosage: 1000 MILLIGRAM, QD (500 MG/12 HOURS)
     Route: 042
     Dates: start: 2019, end: 20190920
  23. TAPENTADOL [Concomitant]
     Active Substance: TAPENTADOL
     Dosage: 300 MILLIGRAM, QD (150 MG, 2X/DAY (EACH 12H))
  24. VFEND [Suspect]
     Active Substance: VORICONAZOLE
     Dosage: 400 MILLIGRAM, QD (200 MG/ 12 HOURS)
     Route: 042
     Dates: start: 20190702, end: 2019
  25. CRESEMBA [Suspect]
     Active Substance: ISAVUCONAZONIUM SULFATE
     Dosage: 600 MILLIGRAM, QD(200 MG,3X/DAY (EACH 8H))
     Route: 065
     Dates: start: 20190921, end: 20190922

REACTIONS (4)
  - Gastrointestinal toxicity [Recovered/Resolved]
  - Nausea [Recovered/Resolved]
  - Vomiting [Recovered/Resolved]
  - Off label use [Unknown]

NARRATIVE: CASE EVENT DATE: 20190923
